FAERS Safety Report 15992447 (Version 2)
Quarter: 2019Q1

REPORT INFORMATION
  Report Type: Spontaneous
  Country: US (occurrence: US)
  Receive Date: 20190221
  Receipt Date: 20190311
  Transmission Date: 20190418
  Serious: No
  Sender: FDA-Public Use
  Company Number: US-ALLERGAN-1841835US

PATIENT
  Age: 69 Year
  Sex: Female

DRUGS (3)
  1. LISINOPRIL. [Concomitant]
     Active Substance: LISINOPRIL
     Indication: HYPERTENSION
     Dosage: UNK
     Route: 048
  2. OXYTROL [Suspect]
     Active Substance: OXYBUTYNIN
     Indication: POLLAKIURIA
     Dosage: UNK
     Route: 062
     Dates: start: 201806, end: 20180825
  3. ATORVASTATIN [Concomitant]
     Active Substance: ATORVASTATIN
     Indication: BLOOD CHOLESTEROL INCREASED
     Dosage: UNK
     Route: 048

REACTIONS (3)
  - Insomnia [Recovered/Resolved]
  - Drug ineffective [Unknown]
  - Nocturia [Recovered/Resolved]

NARRATIVE: CASE EVENT DATE: 201806
